FAERS Safety Report 11709196 (Version 1)
Quarter: 2015Q4

REPORT INFORMATION
  Report Type: Spontaneous
  Country: US (occurrence: US)
  Receive Date: 20151104
  Receipt Date: 20151104
  Transmission Date: 20160304
  Serious: No
  Sender: FDA-Public Use
  Company Number: US-ELI_LILLY_AND_COMPANY-US201103004629

PATIENT
  Age: 79 Year
  Sex: Female

DRUGS (1)
  1. FORTEO [Suspect]
     Active Substance: TERIPARATIDE
     Indication: BONE DISORDER
     Dosage: 20 UG, DAILY (1/D)
     Dates: start: 20110118, end: 20110224

REACTIONS (15)
  - Vascular injury [Unknown]
  - Intentional product misuse [Unknown]
  - Pruritus [Unknown]
  - Mass [Unknown]
  - Diarrhoea [Recovered/Resolved]
  - Pain in extremity [Recovered/Resolved]
  - Dysphonia [Not Recovered/Not Resolved]
  - Throat irritation [Unknown]
  - Malaise [Recovering/Resolving]
  - Acne [Unknown]
  - Burning sensation [Unknown]
  - Back pain [Recovered/Resolved]
  - Muscle spasms [Recovered/Resolved]
  - Rash [Unknown]
  - Pain [Recovered/Resolved]

NARRATIVE: CASE EVENT DATE: 20110121
